FAERS Safety Report 24697396 (Version 1)
Quarter: 2024Q4

REPORT INFORMATION
  Report Type: Spontaneous
  Country: CN (occurrence: CN)
  Receive Date: 20241204
  Receipt Date: 20241204
  Transmission Date: 20250114
  Serious: Yes (Hospitalization)
  Sender: JOHNSON AND JOHNSON
  Company Number: CN-JNJFOC-20241205384

PATIENT
  Age: 22 Year
  Sex: Male

DRUGS (3)
  1. INVEGA SUSTENNA [Suspect]
     Active Substance: PALIPERIDONE PALMITATE
     Indication: Intellectual disability
     Route: 030
     Dates: start: 20240928
  2. INVEGA SUSTENNA [Suspect]
     Active Substance: PALIPERIDONE PALMITATE
     Indication: Behavioural therapy
  3. INVEGA SUSTENNA [Suspect]
     Active Substance: PALIPERIDONE PALMITATE

REACTIONS (5)
  - Muscular weakness [Not Recovered/Not Resolved]
  - Tremor [Not Recovered/Not Resolved]
  - Drooling [Not Recovered/Not Resolved]
  - Discomfort [Not Recovered/Not Resolved]
  - Extrapyramidal disorder [Not Recovered/Not Resolved]

NARRATIVE: CASE EVENT DATE: 20241001
